FAERS Safety Report 7595480 (Version 5)
Quarter: 2016Q2

REPORT INFORMATION
  Report Type: Spontaneous
  Country: US (occurrence: US)
  Receive Date: 20100920
  Receipt Date: 20160608
  Transmission Date: 20160815
  Serious: Yes (Hospitalization)
  Sender: FDA-Public Use
  Company Number: US-ASTRAZENECA-2010SE01984

PATIENT
  Age: 15804 Day
  Sex: Female
  Weight: 70.3 kg

DRUGS (12)
  1. SEROQUEL XR [Suspect]
     Active Substance: QUETIAPINE FUMARATE
     Indication: BIPOLAR DISORDER
     Route: 048
  2. SEROQUEL XR [Suspect]
     Active Substance: QUETIAPINE FUMARATE
     Indication: BIPOLAR DISORDER
     Route: 048
     Dates: start: 2011, end: 20130310
  3. SOMA [Concomitant]
     Active Substance: CARISOPRODOL
     Dosage: AS REQUIRED
  4. IMODIUM [Concomitant]
     Active Substance: LOPERAMIDE HYDROCHLORIDE
  5. SEROQUEL XR [Suspect]
     Active Substance: QUETIAPINE FUMARATE
     Indication: BIPOLAR DISORDER
     Route: 048
  6. CLONOPIN [Concomitant]
     Active Substance: CLONAZEPAM
     Dosage: 0.25MG UNKNOWN
  7. SEROQUEL XR [Suspect]
     Active Substance: QUETIAPINE FUMARATE
     Indication: BIPOLAR DISORDER
     Route: 048
  8. ZANTAC [Concomitant]
     Active Substance: RANITIDINE HYDROCHLORIDE
  9. XANAX [Concomitant]
     Active Substance: ALPRAZOLAM
     Indication: DEPRESSION
     Dosage: 1.0MG UNKNOWN
     Route: 048
     Dates: start: 1995
  10. XANAX [Concomitant]
     Active Substance: ALPRAZOLAM
     Indication: ANXIETY
     Dosage: 1.0MG UNKNOWN
     Route: 048
     Dates: start: 1995
  11. SEROQUEL XR [Suspect]
     Active Substance: QUETIAPINE FUMARATE
     Indication: BIPOLAR DISORDER
     Route: 048
     Dates: start: 2008
  12. LORTAB [Concomitant]
     Active Substance: ACETAMINOPHEN\HYDROCODONE BITARTRATE
     Dosage: AS REQUIRED

REACTIONS (13)
  - Back injury [Unknown]
  - Nausea [Unknown]
  - Drug dose omission [Not Recovered/Not Resolved]
  - Insomnia [Unknown]
  - Weight decreased [Not Recovered/Not Resolved]
  - Visual impairment [Unknown]
  - Vomiting [Unknown]
  - Weight increased [Unknown]
  - Memory impairment [Unknown]
  - Tremor [Unknown]
  - Abdominal discomfort [Unknown]
  - Malaise [Unknown]
  - Pain in extremity [Unknown]

NARRATIVE: CASE EVENT DATE: 20130310
